FAERS Safety Report 8982832 (Version 2)
Quarter: 2013Q1

REPORT INFORMATION
  Report Type: Report from Study
  Country: CA (occurrence: CA)
  Receive Date: 20121221
  Receipt Date: 20130110
  Transmission Date: 20140127
  Serious: Yes (Hospitalization)
  Sender: FDA-Public Use
  Company Number: CA-AMGEN-CANCT2012082235

PATIENT
  Age: 89 Year
  Sex: Female

DRUGS (11)
  1. DENOSUMAB [Suspect]
     Indication: OSTEOPOROSIS POSTMENOPAUSAL
     Dosage: 60 MG, Q6MO
     Route: 058
     Dates: start: 20080206
  2. PYRIDOSTIGMINE [Concomitant]
     Route: 048
  3. AZATHIOPRINE [Concomitant]
     Dosage: 50 MG, BID
     Route: 048
  4. PREDNISONE [Concomitant]
     Dosage: 50 MG, UNK
     Route: 048
     Dates: start: 20121214
  5. RAMIPRIL [Concomitant]
     Dosage: 5 MG, QD
     Route: 048
     Dates: start: 20121104
  6. AMLODIPINE [Concomitant]
     Dosage: 10 MG, QD
     Route: 048
     Dates: start: 20121104
  7. HYDROCHLOROTHIAZIDE [Concomitant]
     Dosage: 25 MG, UNK
     Route: 048
  8. ASA [Concomitant]
     Dosage: 80 MG, QD
     Route: 048
  9. CALCIUM CARBONATE [Concomitant]
     Dosage: 1000 MG, UNK
     Route: 048
  10. VITAMIN D [Concomitant]
     Dosage: 1000 IU, UNK
  11. ATORVASTATIN [Concomitant]
     Dosage: 10 MG, QD
     Route: 048
     Dates: start: 20121104, end: 20121126

REACTIONS (1)
  - Myasthenia gravis [Recovered/Resolved]
